FAERS Safety Report 6111765-5 (Version None)
Quarter: 2009Q1

REPORT INFORMATION
  Report Type: 
  Country: None (occurrence: None)
  Receive Date: 20090311
  Receipt Date: 20080826
  Transmission Date: 20090719
  Serious: No
  Sender: FDA-Public Use
  Company Number: US-TYCO HEALTHCARE/MALLINCKRODT-T200801413

PATIENT

DRUGS (1)
  1. RESTORIL [Suspect]

REACTIONS (1)
  - SOMNOLENCE [None]
